FAERS Safety Report 5240110-2 (Version None)
Quarter: 2007Q1

REPORT INFORMATION
  Report Type: 
  Country: None (occurrence: None)
  Receive Date: 20070216
  Receipt Date: 20070205
  Transmission Date: 20070707
  Serious: Yes (Other)
  Sender: FDA-Public Use
  Company Number: US-PFIZER INC-2007010716

PATIENT
  Sex: Female
  Weight: 48.1 kg

DRUGS (3)
  1. NEURONTIN [Suspect]
     Indication: NEUROLEPTIC MALIGNANT SYNDROME
  2. NEURONTIN [Suspect]
     Indication: AUTONOMIC NEUROPATHY
  3. ELAVIL [Concomitant]

REACTIONS (6)
  - ACTIVITIES OF DAILY LIVING IMPAIRED [None]
  - DIZZINESS [None]
  - FATIGUE [None]
  - FEELING DRUNK [None]
  - GAIT DISTURBANCE [None]
  - TREMOR [None]
